FAERS Safety Report 6744847-5 (Version None)
Quarter: 2010Q2

REPORT INFORMATION
  Report Type: 
  Country: None (occurrence: None)
  Receive Date: 20100527
  Receipt Date: 20100325
  Transmission Date: 20101027
  Serious: No
  Sender: FDA-Public Use
  Company Number: US-BRISTOL-MYERS SQUIBB COMPANY-15037369

PATIENT
  Sex: Female

DRUGS (2)
  1. ONGLYZA [Suspect]
  2. IRON [Suspect]

REACTIONS (2)
  - MUSCULAR WEAKNESS [None]
  - MYALGIA [None]
